FAERS Safety Report 10355815 (Version 4)
Quarter: 2014Q4

REPORT INFORMATION
  Report Type: Spontaneous
  Country: IE (occurrence: IE)
  Receive Date: 20140731
  Receipt Date: 20141121
  Transmission Date: 20150528
  Serious: Yes (Other)
  Sender: FDA-Public Use
  Company Number: IE-ABBVIE-14K-229-1265547-00

PATIENT
  Age: 52 Year
  Sex: Female

DRUGS (7)
  1. NEOTIGASON [Concomitant]
     Active Substance: ACITRETIN
     Indication: PRODUCT USED FOR UNKNOWN INDICATION
  2. HUMIRA [Suspect]
     Active Substance: ADALIMUMAB
     Indication: PSORIASIS
     Dosage: MISSED 3 DOSE
     Route: 058
     Dates: start: 20140521
  3. HUMIRA [Suspect]
     Active Substance: ADALIMUMAB
     Route: 058
     Dates: start: 20141112
  4. SOLPADEINE [Concomitant]
     Active Substance: ACETAMINOPHEN\CODEINE PHOSPHATE
     Indication: PRODUCT USED FOR UNKNOWN INDICATION
  5. VENTOLIN [Concomitant]
     Active Substance: ALBUTEROL SULFATE
     Indication: PRODUCT USED FOR UNKNOWN INDICATION
     Route: 055
  6. AMLODIPINE [Concomitant]
     Active Substance: AMLODIPINE BESYLATE
     Indication: PRODUCT USED FOR UNKNOWN INDICATION
  7. HUMIRA [Suspect]
     Active Substance: ADALIMUMAB
     Dosage: MISSED 2 DOSES
     Route: 058
     Dates: start: 20140812

REACTIONS (6)
  - Wheezing [Unknown]
  - Lower respiratory tract infection [Recovered/Resolved]
  - Lower respiratory tract infection [Recovering/Resolving]
  - Drug dose omission [Unknown]
  - Painful respiration [Unknown]
  - Dyspnoea [Unknown]

NARRATIVE: CASE EVENT DATE: 2014
